FAERS Safety Report 6467578-8 (Version None)
Quarter: 2009Q4

REPORT INFORMATION
  Report Type: 
  Country: None (occurrence: None)
  Receive Date: 20091202
  Receipt Date: 20091117
  Transmission Date: 20100525
  Serious: Yes (Disabling)
  Sender: FDA-Public Use
  Company Number: US-MYLANLABS-2007S1009557

PATIENT
  Age: 75 Year
  Sex: Female
  Weight: 77 kg

DRUGS (4)
  1. OMEPRAZOLE [Suspect]
     Indication: PROPHYLAXIS
     Route: 048
     Dates: start: 20070723, end: 20070730
  2. ETORICOXIB [Suspect]
     Indication: OSTEOARTHRITIS
     Route: 048
     Dates: start: 20070723, end: 20070730
  3. ADCAL-D3 [Concomitant]
     Indication: OSTEOPENIA
     Route: 048
  4. RANITIDINE [Concomitant]
     Indication: HIATUS HERNIA
     Route: 048
     Dates: start: 19950101, end: 20070723

REACTIONS (6)
  - AGITATION [None]
  - CONFUSIONAL STATE [None]
  - HEADACHE [None]
  - NAUSEA [None]
  - TRANSIENT ISCHAEMIC ATTACK [None]
  - VISION BLURRED [None]
